FAERS Safety Report 10207498 (Version 1)
Quarter: 2014Q2

REPORT INFORMATION
  Report Type: Spontaneous
  Country: US (occurrence: US)
  Receive Date: 20140530
  Receipt Date: 20140530
  Transmission Date: 20141212
  Serious: No
  Sender: FDA-Public Use
  Company Number: US-GLAXOSMITHKLINE-A1045849A

PATIENT
  Age: 61 Year
  Sex: Male
  Weight: 80 kg

DRUGS (2)
  1. VENTOLIN [Suspect]
     Indication: RESPIRATORY DISORDER
     Dosage: 2PUFF AS REQUIRED
     Route: 065
     Dates: start: 201211
  2. ADVAIR HFA [Suspect]
     Indication: RESPIRATORY DISORDER
     Dosage: 2PUFF TWICE PER DAY
     Route: 065
     Dates: start: 20091111

REACTIONS (1)
  - Treatment noncompliance [Recovered/Resolved]
